FAERS Safety Report 9053618 (Version 1)
Quarter: 2013Q1

REPORT INFORMATION
  Report Type: Spontaneous
  Country: US (occurrence: None)
  Receive Date: 20130117
  Receipt Date: 20130117
  Transmission Date: 20140127
  Serious: Yes (Life-Threatening, Hospitalization)
  Sender: FDA-Public Use
  Company Number: 2013SUN00004

PATIENT
  Age: 18 Year
  Sex: Male

DRUGS (2)
  1. PHENYTOIN SODIUM [Suspect]
     Indication: CONVULSION
     Dosage: 100 MG, QD, UNKNOWN
  2. LEVETIRACETAM [Suspect]
     Indication: CONVULSION
     Dosage: 500 MG, BID, UNKNOWN

REACTIONS (7)
  - Cough [None]
  - Pyrexia [None]
  - Chromaturia [None]
  - Blood pressure diastolic decreased [None]
  - Discomfort [None]
  - Drug level below therapeutic [None]
  - Drug reaction with eosinophilia and systemic symptoms [None]
